FAERS Safety Report 4511589-6 (Version None)
Quarter: 2004Q4

REPORT INFORMATION
  Report Type: 
  Country: None (occurrence: None)
  Receive Date: 20041129
  Receipt Date: 20041007
  Transmission Date: 20050328
  Serious: No
  Sender: FDA-Public Use
  Company Number: US-BRISTOL-MYERS SQUIBB COMPANY-12726840

PATIENT

DRUGS (1)
  1. ABILIFY [Suspect]

REACTIONS (1)
  - NAUSEA [None]
